FAERS Safety Report 5389936-5 (Version None)
Quarter: 2007Q3

REPORT INFORMATION
  Report Type: 
  Country: None (occurrence: None)
  Receive Date: 20070717
  Receipt Date: 20070717
  Transmission Date: 20080115
  Serious: Yes (Other)
  Sender: FDA-Public Use
  Company Number: None

PATIENT
  Age: 55 Year
  Sex: Female
  Weight: 68.4932 kg

DRUGS (1)
  1. ACTONEL [Suspect]
     Indication: OSTEOPOROSIS
     Dosage: 35 MG -1 TABLET ORALLY WEEKLY - ORALLY ONCE A WEEK PO
     Route: 048
     Dates: start: 20070627, end: 20070704

REACTIONS (9)
  - DRY EYE [None]
  - EYE HAEMORRHAGE [None]
  - EYE IRRITATION [None]
  - EYE MOVEMENT DISORDER [None]
  - EYE PAIN [None]
  - EYE SWELLING [None]
  - HEADACHE [None]
  - PHOTOPHOBIA [None]
  - VISUAL DISTURBANCE [None]
